FAERS Safety Report 7555253-8 (Version None)
Quarter: 2011Q2

REPORT INFORMATION
  Report Type: 
  Country: None (occurrence: None)
  Receive Date: 20110617
  Receipt Date: 20110614
  Transmission Date: 20111010
  Serious: Yes (Life-Threatening, Hospitalization)
  Sender: FDA-Public Use
  Company Number: PHHY2011US48334

PATIENT
  Sex: Male
  Weight: 126.98 kg

DRUGS (1)
  1. AFINITOR [Suspect]
     Dosage: 10 MG, QD
     Route: 048

REACTIONS (3)
  - SPINAL CORD COMPRESSION [None]
  - SPINAL CORD NEOPLASM [None]
  - NEOPLASM MALIGNANT [None]
